FAERS Safety Report 21838632 (Version 1)
Quarter: 2023Q1

REPORT INFORMATION
  Report Type: Spontaneous
  Country: US (occurrence: None)
  Receive Date: 20230108
  Receipt Date: 20230108
  Transmission Date: 20230417
  Serious: Yes (Disabling)
  Sender: FDA-Public Use
  Company Number: None

PATIENT
  Age: 53 Year
  Sex: Male
  Weight: 72 kg

DRUGS (1)
  1. AMIODARONE [Suspect]
     Active Substance: AMIODARONE
     Indication: Cardiac ablation
     Dosage: OTHER QUANTITY : 1 TABLET(S);?FREQUENCY : TWICE A DAY;?
     Route: 048
     Dates: start: 20220401, end: 20220414

REACTIONS (7)
  - Deafness bilateral [None]
  - Sudden hearing loss [None]
  - Deafness [None]
  - Toxicity to various agents [None]
  - Ototoxicity [None]
  - Rash [None]
  - Tinnitus [None]

NARRATIVE: CASE EVENT DATE: 20220405
